FAERS Safety Report 17949346 (Version 2)
Quarter: 2020Q3

REPORT INFORMATION
  Report Type: Report from Study
  Country: None (occurrence: US)
  Receive Date: 20200626
  Receipt Date: 20200811
  Transmission Date: 20201103
  Serious: Yes (Hospitalization, Other)
  Sender: FDA-Public Use
  Company Number: US-ABBVIE-20K-163-3457086-00

PATIENT
  Age: 56 Year
  Sex: Female

DRUGS (1)
  1. HUMIRA [Suspect]
     Active Substance: ADALIMUMAB
     Indication: RHEUMATOID ARTHRITIS
     Dosage: CITRATE FREE
     Route: 058
     Dates: end: 2020

REACTIONS (8)
  - Asthenia [Recovered/Resolved]
  - Ingrowing nail [Recovering/Resolving]
  - Weight increased [Not Recovered/Not Resolved]
  - Asthma [Recovered/Resolved]
  - Dermatitis contact [Recovered/Resolved]
  - Blood pressure increased [Not Recovered/Not Resolved]
  - Melanocytic naevus [Recovering/Resolving]
  - Tooth fracture [Recovered/Resolved]

NARRATIVE: CASE EVENT DATE: 202003
